FAERS Safety Report 7476895-4 (Version None)
Quarter: 2011Q2

REPORT INFORMATION
  Report Type: 
  Country: None (occurrence: None)
  Receive Date: 20110512
  Receipt Date: 20110422
  Transmission Date: 20111010
  Serious: No
  Sender: FDA-Public Use
  Company Number: US-B.I. PHARMACEUTICALS,INC./RIDGEFIELD-2011-BP-03221BP

PATIENT
  Sex: Female

DRUGS (9)
  1. PRADAXA [Suspect]
     Indication: ATRIAL FIBRILLATION
     Dosage: 300 MG
     Route: 048
     Dates: start: 20110119, end: 20110121
  2. METHIMAZOLE [Concomitant]
     Route: 048
  3. POTASSIUM CHLORIDE [Concomitant]
     Dosage: 10 MEQ
     Route: 048
  4. LIPITOR [Concomitant]
     Dosage: 20 MG
     Route: 048
  5. LOSARTAN POTASSIUM AND HYDROCHLOROTHIAZIDE [Concomitant]
     Route: 048
  6. LASIX [Concomitant]
     Dosage: 60 MG
     Route: 048
  7. PRADAXA [Suspect]
     Indication: ANTICOAGULANT THERAPY
  8. METOPROLOL TARTRATE [Concomitant]
     Indication: HEART RATE ABNORMAL
     Dosage: 12.5 MG
     Route: 048
  9. FUROSEMIDE [Concomitant]

REACTIONS (4)
  - ABDOMINAL PAIN [None]
  - VOMITING [None]
  - THROAT TIGHTNESS [None]
  - HAEMATOCHEZIA [None]
